FAERS Safety Report 11971049 (Version 1)
Quarter: 2016Q1

REPORT INFORMATION
  Report Type: Spontaneous
  Country: ZA (occurrence: ZA)
  Receive Date: 20160128
  Receipt Date: 20160128
  Transmission Date: 20160526
  Serious: Yes (Death, Other)
  Sender: FDA-Public Use
  Company Number: ZA-PFIZER INC-2016041544

PATIENT
  Age: 42 Year
  Sex: Male

DRUGS (2)
  1. ZOBONE [Concomitant]
     Indication: METASTASES TO BONE
     Dosage: UNK
     Route: 042
  2. SUTENT [Suspect]
     Active Substance: SUNITINIB MALATE
     Indication: METASTATIC RENAL CELL CARCINOMA
     Dosage: 50 MG, 1X/DAY (2:1 SCHEDULE)
     Route: 048
     Dates: start: 20151125

REACTIONS (2)
  - Rash [Recovered/Resolved]
  - Death [Fatal]

NARRATIVE: CASE EVENT DATE: 20160112
